FAERS Safety Report 4603278-4 (Version None)
Quarter: 2005Q1

REPORT INFORMATION
  Report Type: 
  Country: None (occurrence: None)
  Receive Date: 20050308
  Receipt Date: 20050223
  Transmission Date: 20050727
  Serious: Yes (Other)
  Sender: FDA-Public Use
  Company Number: 2005025686

PATIENT
  Age: 62 Year
  Sex: Female
  Weight: 46 kg

DRUGS (8)
  1. EPIRUBICIN HYDROCHLORIDE (EPIRUBICIN HYDROCHLORIDE) [Suspect]
     Indication: BREAST CANCER
     Dosage: (70 MG, CYCLIC X6), INTRAVENOUS
     Route: 042
     Dates: start: 20040906, end: 20041221
  2. ALLOPURINOL [Concomitant]
  3. PRAVASTAIN SODIUM (PRAVASTATIN SODIUM) [Concomitant]
  4. CANDESARTAN [Concomitant]
  5. INSULIN LISPRO (INSULIN LISPRO) [Concomitant]
  6. FLUOROURACIL [Concomitant]
  7. CYCLOPHOSPHAMIDE [Concomitant]
  8. INSULIN GLARGINE (INSULIN GLARGINE) [Concomitant]

REACTIONS (4)
  - DRUG EFFECT DECREASED [None]
  - EOSINOPHIL COUNT INCREASED [None]
  - NASOPHARYNGITIS [None]
  - PRODUCTIVE COUGH [None]
